FAERS Safety Report 10051112 (Version 1)
Quarter: 2014Q2

REPORT INFORMATION
  Report Type: Spontaneous
  Country: FR (occurrence: FR)
  Receive Date: 20140401
  Receipt Date: 20140401
  Transmission Date: 20141212
  Serious: Yes (Death, Hospitalization, Other)
  Sender: FDA-Public Use
  Company Number: FR-PFIZER INC-2014088109

PATIENT
  Age: 40 Year
  Sex: Female

DRUGS (5)
  1. ADEPAL [Suspect]
     Dosage: 1 DF, 1X/DAY
     Route: 048
     Dates: end: 20140312
  2. PAROXETINE [Suspect]
     Dosage: 20 MG, 2X/DAY
     Route: 048
     Dates: end: 20140312
  3. AMOXICILLIN [Suspect]
     Dosage: 1 G, 3X/DAY
     Route: 048
     Dates: start: 20140306, end: 20140312
  4. XEROQUEL LP [Suspect]
     Dosage: 300 MG, 1X/DAY
     Route: 048
     Dates: end: 20140317
  5. VALPROATE SODIUM [Suspect]
     Dosage: 500 MG, 3X/DAY
     Route: 048
     Dates: end: 20140319

REACTIONS (4)
  - Intestinal infarction [Fatal]
  - Portal vein thrombosis [Unknown]
  - Renal vein thrombosis [Unknown]
  - Cholelithiasis [Unknown]
